FAERS Safety Report 7370686-0 (Version None)
Quarter: 2011Q1

REPORT INFORMATION
  Report Type: 
  Country: None (occurrence: None)
  Receive Date: 20110323
  Receipt Date: 20110314
  Transmission Date: 20110831
  Serious: Yes (Hospitalization, Other)
  Sender: FDA-Public Use
  Company Number: US-MYLANLABS-2011S1005599

PATIENT
  Age: 80 Year
  Sex: Female

DRUGS (13)
  1. ASPIRIN [Concomitant]
     Route: 048
  2. SYNTHROID [Concomitant]
     Route: 048
  3. CENTRUM SILVER [Concomitant]
     Route: 048
  4. MILNACIPRAN HYDROCHLORIDE [Suspect]
     Indication: PAIN
     Dates: start: 20100101
  5. TRAMADOL [Suspect]
     Indication: PAIN
     Route: 048
     Dates: start: 20100101
  6. FOSAMAX [Concomitant]
     Route: 048
  7. LIDODERM [Concomitant]
     Route: 062
  8. AVAPRO [Concomitant]
     Route: 048
  9. MELATONIN [Concomitant]
     Route: 048
  10. LIPITOR [Concomitant]
     Route: 048
  11. NORVASC [Concomitant]
     Route: 048
  12. POLYETHYLENE GLYCOL [Concomitant]
     Route: 048
  13. GLYCERIN /00200601/ [Concomitant]
     Route: 054

REACTIONS (2)
  - LOBAR PNEUMONIA [None]
  - STEVENS-JOHNSON SYNDROME [None]
